FAERS Safety Report 7886667-4 (Version None)
Quarter: 2011Q4

REPORT INFORMATION
  Report Type: 
  Country: None (occurrence: None)
  Receive Date: 20111102
  Receipt Date: 20110709
  Transmission Date: 20120403
  Serious: No
  Sender: FDA-Public Use
  Company Number: US-AMGEN-USASP2011034943

PATIENT
  Age: 56 Year

DRUGS (1)
  1. ENBREL [Suspect]
     Indication: PSORIASIS
     Dosage: 50 MG, QWK
     Dates: start: 20110418

REACTIONS (4)
  - INJECTION SITE PRURITUS [None]
  - DIARRHOEA [None]
  - HEADACHE [None]
  - PSORIASIS [None]
